FAERS Safety Report 6909792-0 (Version None)
Quarter: 2010Q3

REPORT INFORMATION
  Report Type: 
  Country: None (occurrence: None)
  Receive Date: 20100806
  Receipt Date: 20100727
  Transmission Date: 20110219
  Serious: No
  Sender: FDA-Public Use
  Company Number: US-BIOGENIDEC-2010BI011785

PATIENT
  Age: 55 Year
  Sex: Female

DRUGS (2)
  1. TYSABRI [Suspect]
     Indication: MULTIPLE SCLEROSIS
     Route: 042
     Dates: start: 20070828, end: 20071215
  2. TYSABRI [Suspect]
     Route: 042
     Dates: start: 20091207

REACTIONS (10)
  - ANXIETY [None]
  - ARTHRALGIA [None]
  - BLOOD PRESSURE INCREASED [None]
  - BURNING SENSATION [None]
  - HYPERTENSION [None]
  - HYPOAESTHESIA [None]
  - INFUSION SITE HAEMATOMA [None]
  - INFUSION SITE PAIN [None]
  - PARAESTHESIA [None]
  - SENSORY DISTURBANCE [None]
